FAERS Safety Report 7118576-2 (Version None)
Quarter: 2010Q4

REPORT INFORMATION
  Report Type: 
  Country: None (occurrence: None)
  Receive Date: 20101123
  Receipt Date: 20101112
  Transmission Date: 20110411
  Serious: Yes (Hospitalization)
  Sender: FDA-Public Use
  Company Number: US-SANOFI-AVENTIS-2010SA069428

PATIENT
  Sex: Female
  Weight: 52.72 kg

DRUGS (7)
  1. AMBIEN [Suspect]
     Route: 048
     Dates: end: 20090101
  2. METOPROLOL [Concomitant]
  3. SYNTHROID [Concomitant]
     Indication: THYROID DISORDER
     Route: 048
  4. AMLODIPINE [Concomitant]
     Dosage: HALF OF A 10 MG TABLET
  5. CYMBALTA [Concomitant]
     Indication: DEPRESSION
     Route: 048
  6. TYLENOL (CAPLET) [Concomitant]
     Route: 048
  7. HERBAL PREPARATION [Concomitant]

REACTIONS (2)
  - EPISTAXIS [None]
  - FACIAL BONES FRACTURE [None]
